FAERS Safety Report 7603851-5 (Version None)
Quarter: 2011Q3

REPORT INFORMATION
  Report Type: 
  Country: None (occurrence: None)
  Receive Date: 20110712
  Receipt Date: 20110706
  Transmission Date: 20111222
  Serious: No
  Sender: FDA-Public Use
  Company Number: US-PFIZER INC-2011152347

PATIENT
  Sex: Female
  Weight: 86.2 kg

DRUGS (1)
  1. PREMARIN [Suspect]
     Indication: MENOPAUSAL SYMPTOMS
     Dosage: UNK
     Route: 067
     Dates: start: 20091104, end: 20090101

REACTIONS (4)
  - INFLAMMATION [None]
  - BURNING SENSATION [None]
  - HYPERSENSITIVITY [None]
  - PRURITUS [None]
